FAERS Safety Report 5208349-X (Version None)
Quarter: 2007Q1

REPORT INFORMATION
  Report Type: 
  Country: None (occurrence: None)
  Receive Date: 20070110
  Receipt Date: 20070110
  Transmission Date: 20070707
  Serious: No
  Sender: FDA-Public Use
  Company Number: None

PATIENT
  Sex: Female
  Weight: 63.5036 kg

DRUGS (1)
  1. ALDARA [Suspect]
     Indication: SQUAMOUS CELL CARCINOMA
     Dosage: 1 PACKET 5 TIMES PER WEEK TOP
     Dates: start: 20061106, end: 20061115

REACTIONS (4)
  - BURNS THIRD DEGREE [None]
  - ERYTHEMA [None]
  - SCAB [None]
  - SKIN DISCOLOURATION [None]
